FAERS Safety Report 5939951-5 (Version None)
Quarter: 2008Q4

REPORT INFORMATION
  Report Type: 
  Country: None (occurrence: None)
  Receive Date: 20081031
  Receipt Date: 20081031
  Transmission Date: 20090506
  Serious: Yes (Life-Threatening, Hospitalization)
  Sender: FDA-Public Use
  Company Number: None

PATIENT
  Age: 65 Year
  Sex: Female
  Weight: 62.5964 kg

DRUGS (2)
  1. RELAFEN [Suspect]
     Indication: JOINT SPRAIN
     Dosage: 1 PER DAY
     Dates: start: 20080602, end: 20080707
  2. FOSAMAX [Suspect]
     Indication: OSTEOPENIA
     Dosage: 1 PER WEEK
     Dates: start: 20071115, end: 20080707

REACTIONS (10)
  - BLOOD PRESSURE INCREASED [None]
  - BURN OF INTERNAL ORGANS [None]
  - CONVULSION [None]
  - GASTRIC HAEMORRHAGE [None]
  - GASTROINTESTINAL ULCER [None]
  - INJURY [None]
  - INTENTIONAL DRUG MISUSE [None]
  - MYOCARDIAL INFARCTION [None]
  - RASH [None]
  - UNRESPONSIVE TO STIMULI [None]
